FAERS Safety Report 7376578-5 (Version None)
Quarter: 2011Q1

REPORT INFORMATION
  Report Type: 
  Country: None (occurrence: None)
  Receive Date: 20110325
  Receipt Date: 20110316
  Transmission Date: 20110831
  Serious: Yes (Hospitalization)
  Sender: FDA-Public Use
  Company Number: US-AMGEN-USASP2011014688

PATIENT
  Age: 72 Year
  Sex: Female

DRUGS (1)
  1. ENBREL [Suspect]
     Indication: RHEUMATOID ARTHRITIS
     Dosage: 25 MG, 2 TIMES/WK
     Dates: start: 20030101

REACTIONS (6)
  - HIP ARTHROPLASTY [None]
  - RHEUMATOID ARTHRITIS [None]
  - FOOT DEFORMITY [None]
  - SKIN HYPERTROPHY [None]
  - HAND DEFORMITY [None]
  - INJECTION SITE DISCOLOURATION [None]
